FAERS Safety Report 13367695 (Version 1)
Quarter: 2017Q1

REPORT INFORMATION
  Report Type: Report from Study
  Country: US (occurrence: US)
  Receive Date: 20170324
  Receipt Date: 20170324
  Transmission Date: 20170429
  Serious: Yes (Hospitalization, Other)
  Sender: FDA-Public Use
  Company Number: US-BAYER-2017-009387

PATIENT
  Age: 72 Year
  Sex: Female

DRUGS (2)
  1. STIVARGA [Suspect]
     Active Substance: REGORAFENIB
     Indication: GASTROINTESTINAL STROMAL TUMOUR
     Dosage: 160 MG, QD
     Dates: start: 20170110, end: 20170126
  2. STIVARGA [Suspect]
     Active Substance: REGORAFENIB
     Indication: GASTROINTESTINAL STROMAL TUMOUR
     Dosage: 120 MG, QD
     Route: 048
     Dates: start: 20170209

REACTIONS (14)
  - Blood pressure fluctuation [None]
  - Dysphonia [Not Recovered/Not Resolved]
  - Bone pain [Recovering/Resolving]
  - Limb discomfort [Not Recovered/Not Resolved]
  - Pain in extremity [Not Recovered/Not Resolved]
  - Gait disturbance [Not Recovered/Not Resolved]
  - Palmar-plantar erythrodysaesthesia syndrome [Not Recovered/Not Resolved]
  - Pain in extremity [Unknown]
  - Blister infected [Not Recovered/Not Resolved]
  - Weight decreased [Not Recovered/Not Resolved]
  - Chest pain [Unknown]
  - Ear discomfort [Not Recovered/Not Resolved]
  - Dysphonia [Unknown]
  - Limb discomfort [Unknown]

NARRATIVE: CASE EVENT DATE: 201701
